FAERS Safety Report 9806526 (Version 2)
Quarter: 2014Q1

REPORT INFORMATION
  Report Type: Spontaneous
  Country: BR (occurrence: BR)
  Receive Date: 20140109
  Receipt Date: 20140115
  Transmission Date: 20141002
  Serious: Yes (Other)
  Sender: FDA-Public Use
  Company Number: BR-PFIZER INC-2014004555

PATIENT
  Age: 59 Year
  Sex: Female
  Weight: 69.5 kg

DRUGS (1)
  1. LIPITOR [Suspect]
     Dosage: UNK
     Route: 048

REACTIONS (8)
  - Cardiac disorder [Unknown]
  - Dizziness [Unknown]
  - Nausea [Unknown]
  - Muscular weakness [Unknown]
  - Balance disorder [Unknown]
  - Dysgeusia [Unknown]
  - Feeling abnormal [Unknown]
  - Asthenia [Unknown]
